FAERS Safety Report 7702058-0 (Version None)
Quarter: 2011Q3

REPORT INFORMATION
  Report Type: 
  Country: None (occurrence: None)
  Receive Date: 20110822
  Receipt Date: 20110811
  Transmission Date: 20111222
  Serious: Yes (Disabling, Other)
  Sender: FDA-Public Use
  Company Number: US-ASTRAZENECA-2011SE37919

PATIENT
  Sex: Female

DRUGS (10)
  1. FE [Concomitant]
  2. MULTIVITA [Concomitant]
  3. ALDACTONE [Concomitant]
  4. LASIX [Concomitant]
  5. PHENERGAN HCL [Concomitant]
  6. ASCORBIC ACID [Concomitant]
  7. ZOFRAN [Concomitant]
     Indication: NAUSEA
  8. NEXIUM [Suspect]
     Route: 048
  9. ZANTAC [Concomitant]
  10. CARAFATE [Concomitant]

REACTIONS (6)
  - GLAUCOMA [None]
  - MALAISE [None]
  - BARRETT'S OESOPHAGUS [None]
  - RETINAL TEAR [None]
  - CATARACT [None]
  - BLINDNESS [None]
